FAERS Safety Report 13051711 (Version 4)
Quarter: 2017Q2

REPORT INFORMATION
  Report Type: Spontaneous
  Country: US (occurrence: US)
  Receive Date: 20161221
  Receipt Date: 20170410
  Transmission Date: 20170830
  Serious: No
  Sender: FDA-Public Use
  Company Number: US-PFIZER INC-2016588987

PATIENT
  Age: 76 Year
  Sex: Male
  Weight: 76 kg

DRUGS (14)
  1. POTASSIUM CHLORIDE. [Concomitant]
     Active Substance: POTASSIUM CHLORIDE
     Indication: BLOOD POTASSIUM
     Dosage: 10 MEQ, DAILY
  2. VITAMIN D3 [Concomitant]
     Active Substance: CHOLECALCIFEROL
     Dosage: 1000 IU, TWICE A DAY
  3. TYLENOL WITH CODEINE [Concomitant]
     Active Substance: ACETAMINOPHEN\CODEINE PHOSPHATE
     Dosage: 30/300 MG, AS NEEDED
  4. FOLIC ACID. [Concomitant]
     Active Substance: FOLIC ACID
     Dosage: 1200 UG, TWICE A DAY
  5. VALSARTAN. [Concomitant]
     Active Substance: VALSARTAN
     Indication: HYPERTENSION
     Dosage: 160 MG, TWICE DAILY (320 MG TAB, TAKE HALF IN THE MORNING AND HALF IN THE EVENING [1/2AM 1/2PM])
     Route: 048
  6. CALCIUM [Concomitant]
     Active Substance: CALCIUM
     Dosage: 300 MG, TWICE A DAY (2 MONTHS)
  7. CLONIDINE. [Concomitant]
     Active Substance: CLONIDINE
     Dosage: 0.3 MG, THREE TIMES A DAY
     Dates: start: 20161220
  8. VITAMIN B12 [Concomitant]
     Active Substance: CYANOCOBALAMIN
     Dosage: 1000 UG, TWICE A DAY
  9. CLONIDINE. [Concomitant]
     Active Substance: CLONIDINE
     Indication: HYPERTENSION
     Dosage: 0.2 MG, THREE TIMES A DAY
     Route: 048
  10. MAGNESIUM [Concomitant]
     Active Substance: MAGNESIUM
     Dosage: 100 MG, TWICE A DAY
  11. CARVEDILOL. [Concomitant]
     Active Substance: CARVEDILOL
     Indication: HYPERTENSION
     Dosage: 25 MG, TWICE DAILY (DATE STARTED: TWO PLUS YEAR)
     Route: 048
  12. FUROSEMIDE. [Concomitant]
     Active Substance: FUROSEMIDE
     Indication: DEHYDRATION
     Dosage: 20 MG, DAILY
  13. XELJANZ [Suspect]
     Active Substance: TOFACITINIB CITRATE
     Indication: RHEUMATOID ARTHRITIS
     Dosage: 5 MG, TWICE DAILY
     Route: 048
     Dates: start: 20161214
  14. LEVOTHYROXINE. [Concomitant]
     Active Substance: LEVOTHYROXINE
     Indication: THYROID DISORDER
     Dosage: 75 UG, DAILY

REACTIONS (5)
  - Eye pain [Recovered/Resolved]
  - Nasal congestion [Not Recovered/Not Resolved]
  - Lacrimal disorder [Recovered/Resolved]
  - Cough [Not Recovered/Not Resolved]
  - Ocular discomfort [Recovered/Resolved]

NARRATIVE: CASE EVENT DATE: 201612
